FAERS Safety Report 13677776 (Version 1)
Quarter: 2017Q2

REPORT INFORMATION
  Report Type: Spontaneous
  Country: US (occurrence: US)
  Receive Date: 20170622
  Receipt Date: 20170622
  Transmission Date: 20170830
  Serious: No
  Sender: FDA-Public Use
  Company Number: US-GLAXOSMITHKLINE-US2017092646

PATIENT
  Sex: Female

DRUGS (1)
  1. ABREVA [Suspect]
     Active Substance: DOCOSANOL
     Indication: BLISTER
     Dosage: UNK
     Dates: start: 201705

REACTIONS (5)
  - Drug ineffective for unapproved indication [Unknown]
  - Incorrect drug administration duration [Unknown]
  - Condition aggravated [Unknown]
  - Blister [Unknown]
  - Product use in unapproved indication [Unknown]
